FAERS Safety Report 6712837-4 (Version None)
Quarter: 2010Q2

REPORT INFORMATION
  Report Type: 
  Country: None (occurrence: None)
  Receive Date: 20100506
  Receipt Date: 20091202
  Transmission Date: 20101027
  Serious: No
  Sender: FDA-Public Use
  Company Number: A0832868A

PATIENT
  Age: 80 Year
  Sex: Male

DRUGS (1)
  1. AUGMENTIN XR [Suspect]
     Dosage: 2TAB SINGLE DOSE
     Route: 048
     Dates: start: 20091201

REACTIONS (1)
  - DIARRHOEA [None]
